FAERS Safety Report 5530222-8 (Version None)
Quarter: 2007Q4

REPORT INFORMATION
  Report Type: 
  Country: None (occurrence: None)
  Receive Date: 20071127
  Receipt Date: 20071127
  Transmission Date: 20080405
  Serious: No
  Sender: FDA-Public Use
  Company Number: None

PATIENT

DRUGS (4)
  1. AVANDIA [Suspect]
  2. LIPITOR [Suspect]
  3. CRESTOR [Suspect]
  4. PLAVIX [Suspect]

REACTIONS (5)
  - EMOTIONAL DISORDER [None]
  - FOOD INTERACTION [None]
  - IMPAIRED WORK ABILITY [None]
  - MYOCARDIAL INFARCTION [None]
  - PAIN [None]
